FAERS Safety Report 21931795 (Version 8)
Quarter: 2023Q1

REPORT INFORMATION
  Report Type: Report from Study
  Country: CN (occurrence: None)
  Receive Date: 20230131
  Receipt Date: 20230324
  Transmission Date: 20230418
  Serious: Yes (Hospitalization)
  Sender: FDA-Public Use
  Company Number: CN-ROCHE-3273912

PATIENT
  Age: 59 Year
  Sex: Female
  Weight: 53.4 kg

DRUGS (17)
  1. ATEZOLIZUMAB [Suspect]
     Active Substance: ATEZOLIZUMAB
     Indication: HER2 positive breast cancer
     Dosage: ON 30/JUN/2022 PATIENT HAD MOST RECENT DOSE OF ATEZOLIZUMAB PRIOR TO AE AND SAE.
     Route: 041
     Dates: start: 20220609
  2. ADO-TRASTUZUMAB EMTANSINE [Suspect]
     Active Substance: ADO-TRASTUZUMAB EMTANSINE
     Indication: HER2 positive breast cancer
     Dosage: ON 09/JUN/2022 PATIENT HAD MOST RECENT DOSE OF TRASTUZUMAB EMTANSINE PRIOR TO AE 134.4 MG/KG??ON 22/
     Route: 042
     Dates: start: 20220609
  3. TRASTUZUMAB [Suspect]
     Active Substance: TRASTUZUMAB
     Indication: HER2 positive breast cancer
     Dosage: ON 03/JAN/2023 PATIENT HAD MOST RECENT DOSE OF TRASTUZUMAB PRIOR TO SAE 436 MG/KG
     Route: 041
     Dates: start: 20230103
  4. BICYCLIC ALCOHOL [Concomitant]
     Dates: start: 20220926
  5. ACANTHOPANAX [Concomitant]
     Indication: Insomnia
     Dates: start: 20221031
  6. THROMBOPOIETIN [Concomitant]
     Active Substance: THROMBOPOIETIN
     Dates: start: 20230113, end: 20230121
  7. CAFFEIC ACID [Concomitant]
     Active Substance: CAFFEIC ACID
     Indication: Haemorrhage prophylaxis
     Dates: start: 20230116, end: 20230127
  8. HEROMBOPAG OLAMINE [Concomitant]
     Dates: start: 20230119, end: 20230131
  9. HUMAN IMMUNOGLOBULIN G [Concomitant]
     Active Substance: HUMAN IMMUNOGLOBULIN G
     Route: 042
     Dates: start: 20230124, end: 20230127
  10. VITAMIN B6 [Concomitant]
     Active Substance: PYRIDOXINE HYDROCHLORIDE
     Indication: Vitamin supplementation
     Dates: start: 20230127
  11. VITAMIN C [Concomitant]
     Active Substance: ASCORBIC ACID
     Dates: start: 20230127
  12. POTASSIUM CHLORIDE [Concomitant]
     Active Substance: POTASSIUM CHLORIDE
     Dates: start: 20230127
  13. SILYBIN [Concomitant]
     Dates: start: 20230131
  14. SODIUM CHLORIDE [Concomitant]
     Active Substance: SODIUM CHLORIDE
     Dates: start: 20230119
  15. PREDNISONE ACETATE [Concomitant]
     Active Substance: PREDNISONE ACETATE
     Dates: start: 20230209, end: 20230211
  16. DEXAMETHASONE SODIUM PHOSPHATE [Concomitant]
     Active Substance: DEXAMETHASONE SODIUM PHOSPHATE
     Dates: start: 20230127, end: 20230201
  17. RECOMBINANT HUMAN GRANULOCYTE STIMULATING FACTOR (UNK INGREDIENTS) [Concomitant]
     Dates: start: 20230113, end: 20230114

REACTIONS (1)
  - Platelet count decreased [Not Recovered/Not Resolved]

NARRATIVE: CASE EVENT DATE: 20230113
